FAERS Safety Report 17009985 (Version 1)
Quarter: 2019Q4

REPORT INFORMATION
  Report Type: Spontaneous
  Country: US (occurrence: US)
  Receive Date: 20191107
  Receipt Date: 20191107
  Transmission Date: 20200122
  Serious: Yes (Disabling)
  Sender: FDA-Public Use
  Company Number: None

PATIENT
  Age: 28 Year
  Sex: Male
  Weight: 101.25 kg

DRUGS (1)
  1. RANITIDINE HYDROCHLORIDE. [Suspect]
     Active Substance: RANITIDINE HYDROCHLORIDE
     Dosage: ?          QUANTITY:90 CAPSULE(S);?
     Route: 048

REACTIONS (2)
  - Dyspnoea [None]
  - Dyspepsia [None]

NARRATIVE: CASE EVENT DATE: 20191022
